FAERS Safety Report 21722689 (Version 3)
Quarter: 2023Q1

REPORT INFORMATION
  Report Type: Spontaneous
  Country: US (occurrence: US)
  Receive Date: 20221213
  Receipt Date: 20230228
  Transmission Date: 20230418
  Serious: Yes (Hospitalization, Other)
  Sender: FDA-Public Use
  Company Number: US-JUBILANT CADISTA PHARMACEUTICALS-2022JUB00471

PATIENT
  Age: 54 Year
  Sex: Female

DRUGS (5)
  1. PREDNISONE [Suspect]
     Active Substance: PREDNISONE
     Dosage: LOW DOSE
  2. HYDROXYCHLOROQUINE [Suspect]
     Active Substance: HYDROXYCHLOROQUINE
     Dosage: LOW DOSE
  3. NIFEDIPINE [Concomitant]
     Active Substance: NIFEDIPINE
  4. INSULIN GLARGINE [Concomitant]
     Active Substance: INSULIN GLARGINE
  5. FUROSEMIDE [Concomitant]
     Active Substance: FUROSEMIDE

REACTIONS (10)
  - Tubulointerstitial nephritis [Recovering/Resolving]
  - Systemic candida [Recovering/Resolving]
  - Hypotension [Unknown]
  - Urinary tract candidiasis [Recovering/Resolving]
  - Thrombocytopenia [Unknown]
  - Pyelonephritis fungal [Recovering/Resolving]
  - Anaemia [Unknown]
  - Proteus infection [Unknown]
  - Acute kidney injury [Recovered/Resolved]
  - Acute respiratory failure [Unknown]
